FAERS Safety Report 11021403 (Version 1)
Quarter: 2015Q2

REPORT INFORMATION
  Report Type: Spontaneous
  Country: TR (occurrence: TR)
  Receive Date: 20150413
  Receipt Date: 20150413
  Transmission Date: 20150821
  Serious: Yes (Other)
  Sender: FDA-Public Use
  Company Number: TR-NOVOPROD-444701

PATIENT
  Sex: Female

DRUGS (3)
  1. ESTROFEM [Suspect]
     Active Substance: ESTRADIOL CYPIONATE
     Indication: LUTEAL PHASE DEFICIENCY
     Dosage: 4 MG, BID (2+2 MG/DAY)
     Route: 048
  2. ESTROFEM [Suspect]
     Active Substance: ESTRADIOL CYPIONATE
     Indication: OFF LABEL USE
  3. CRINONE [Concomitant]
     Active Substance: PROGESTERONE
     Indication: LUTEAL PHASE DEFICIENCY
     Dosage: 90 MG
     Route: 067

REACTIONS (3)
  - Abortion spontaneous [Unknown]
  - Exposure during pregnancy [Unknown]
  - Product use issue [Unknown]
